FAERS Safety Report 13016711 (Version 1)
Quarter: 2016Q4

REPORT INFORMATION
  Report Type: Report from Study
  Country: US (occurrence: US)
  Receive Date: 20161212
  Receipt Date: 20161212
  Transmission Date: 20170207
  Serious: Yes (Other)
  Sender: FDA-Public Use
  Company Number: US-AMGEN-USASL2016172612

PATIENT
  Age: 62 Year
  Sex: Female

DRUGS (1)
  1. ENBREL [Suspect]
     Active Substance: ETANERCEPT
     Indication: RHEUMATOID ARTHRITIS
     Dosage: UNK
     Route: 065
     Dates: start: 201609, end: 20161123

REACTIONS (8)
  - Generalised erythema [Unknown]
  - Injection site erythema [Unknown]
  - Injection site urticaria [Unknown]
  - Urticaria [Unknown]
  - Rheumatoid arthritis [Unknown]
  - Injection site pruritus [Unknown]
  - Myalgia [Unknown]
  - Pruritus generalised [Unknown]

NARRATIVE: CASE EVENT DATE: 201609
